FAERS Safety Report 8347419-4 (Version None)
Quarter: 2012Q2

REPORT INFORMATION
  Report Type: 
  Country: None (occurrence: None)
  Receive Date: 20120509
  Receipt Date: 20120426
  Transmission Date: 20120825
  Serious: Yes (Hospitalization)
  Sender: FDA-Public Use
  Company Number: US-ROCHE-1062539

PATIENT
  Sex: Male

DRUGS (5)
  1. ALBUTEROL [Concomitant]
     Indication: DYSPNOEA
  2. PULMOZYME [Suspect]
     Indication: SECRETION DISCHARGE
     Dates: start: 20120404
  3. VICODIN [Concomitant]
     Indication: PAIN
  4. LEVSIN PB [Concomitant]
     Indication: SECRETION DISCHARGE
  5. ALPRAZOLAM [Concomitant]
     Indication: ANXIETY

REACTIONS (3)
  - BRONCHITIS [None]
  - DRUG INEFFECTIVE [None]
  - PNEUMONIA [None]
